FAERS Safety Report 10380245 (Version 1)
Quarter: 2014Q3

REPORT INFORMATION
  Report Type: Spontaneous
  Country: US (occurrence: None)
  Receive Date: 20140811
  Receipt Date: 20140811
  Transmission Date: 20150326
  Serious: No
  Sender: FDA-Public Use
  Company Number: None

PATIENT
  Age: 37 Year
  Sex: Female
  Weight: 81.65 kg

DRUGS (1)
  1. QSYMIA [Suspect]
     Active Substance: PHENTERMINE HYDROCHLORIDE\TOPIRAMATE
     Indication: WEIGHT DECREASED
     Route: 048
     Dates: start: 20140731, end: 20140807

REACTIONS (11)
  - Headache [None]
  - Dizziness [None]
  - Palpitations [None]
  - Chest discomfort [None]
  - Paraesthesia [None]
  - Adverse drug reaction [None]
  - Dyspnoea [None]
  - Fatigue [None]
  - Confusional state [None]
  - Hyperhidrosis [None]
  - Panic disorder [None]

NARRATIVE: CASE EVENT DATE: 20140807
